FAERS Safety Report 5690078-X (Version None)
Quarter: 2008Q1

REPORT INFORMATION
  Report Type: 
  Country: None (occurrence: None)
  Receive Date: 20080331
  Receipt Date: 20080331
  Transmission Date: 20080703
  Serious: Yes (Other)
  Sender: FDA-Public Use
  Company Number: None

PATIENT
  Age: 3 Year
  Sex: Female
  Weight: 12.7007 kg

DRUGS (1)
  1. FLOVENT [Suspect]
     Indication: ASTHMA
     Dosage: 1 WHIFF 2X DAY AS NEEDED
     Dates: start: 20070301, end: 20070926

REACTIONS (5)
  - CONVERSION DISORDER [None]
  - MOOD ALTERED [None]
  - PERSONALITY CHANGE [None]
  - UNRESPONSIVE TO STIMULI [None]
  - URINARY INCONTINENCE [None]
